FAERS Safety Report 9436228 (Version 1)
Quarter: 2013Q3

REPORT INFORMATION
  Report Type: Spontaneous
  Country: AU (occurrence: AU)
  Receive Date: 20130801
  Receipt Date: 20130801
  Transmission Date: 20140515
  Serious: Yes (Other)
  Sender: FDA-Public Use
  Company Number: AU-JNJFOC-20130713475

PATIENT
  Age: 37 Year
  Sex: Male

DRUGS (1)
  1. NICORETTE CLASSIC 4MG [Suspect]
     Indication: PRODUCT USED FOR UNKNOWN INDICATION
     Route: 048

REACTIONS (2)
  - Oral discomfort [Not Recovered/Not Resolved]
  - Mouth ulceration [Not Recovered/Not Resolved]
